FAERS Safety Report 8605378-0 (Version None)
Quarter: 2012Q3

REPORT INFORMATION
  Report Type: 
  Country: None (occurrence: None)
  Receive Date: 20120820
  Receipt Date: 20120816
  Transmission Date: 20120928
  Serious: Yes (Other)
  Sender: FDA-Public Use
  Company Number: US-PFIZER INC-2012201189

PATIENT
  Age: 85 Year
  Sex: Female
  Weight: 58.503 kg

DRUGS (5)
  1. LANOXIN [Concomitant]
     Dosage: 0.25 MG, UNK
  2. SPIRONOLACTONE [Suspect]
     Indication: HYPERTENSION
     Dosage: 25 MG, UNK
     Route: 048
  3. FELODIPINE [Suspect]
     Indication: HYPERTENSION
     Dosage: 2.5 MG, 1X/DAY
     Route: 048
     Dates: start: 20070418
  4. DYRENIUM [Concomitant]
     Dosage: 60 MG, 1X/DAY
  5. NORPACE [Concomitant]
     Dosage: 150 MG, 4X/DAY

REACTIONS (29)
  - COLOUR BLINDNESS ACQUIRED [None]
  - OPTIC NERVE DISORDER [None]
  - PAIN IN EXTREMITY [None]
  - ANXIETY [None]
  - NECK PAIN [None]
  - MOBILITY DECREASED [None]
  - DECREASED APPETITE [None]
  - PAINFUL RESPIRATION [None]
  - ARTHRALGIA [None]
  - PAIN [None]
  - BLINDNESS TRANSIENT [None]
  - SEPSIS [None]
  - HYPOACUSIS [None]
  - ARTHRITIS [None]
  - FEELING ABNORMAL [None]
  - EYE PAIN [None]
  - HEADACHE [None]
  - DYSGRAPHIA [None]
  - BLINDNESS [None]
  - FLANK PAIN [None]
  - DIZZINESS [None]
  - PARALYSIS [None]
  - SKIN MASS [None]
  - WEIGHT DECREASED [None]
  - VISUAL IMPAIRMENT [None]
  - HAEMORRHAGE [None]
  - TREMOR [None]
  - MUSCULOSKELETAL PAIN [None]
  - GAIT DISTURBANCE [None]
